FAERS Safety Report 14314290 (Version 1)
Quarter: 2017Q4

REPORT INFORMATION
  Report Type: Spontaneous
  Country: BR (occurrence: BR)
  Receive Date: 20171221
  Receipt Date: 20171221
  Transmission Date: 20180321
  Serious: Yes (Other)
  Sender: FDA-Public Use
  Company Number: BR-JNJFOC-20171218904

PATIENT
  Sex: Female

DRUGS (1)
  1. PANTELMIN [Suspect]
     Active Substance: MEBENDAZOLE
     Indication: INFECTION PARASITIC
     Route: 048

REACTIONS (5)
  - Product use in unapproved indication [Unknown]
  - Poisoning [Unknown]
  - Off label use [Unknown]
  - Throat irritation [Unknown]
  - Dyspepsia [Unknown]
